FAERS Safety Report 26020108 (Version 1)
Quarter: 2025Q4

REPORT INFORMATION
  Report Type: Spontaneous
  Country: EU (occurrence: EU)
  Receive Date: 20251110
  Receipt Date: 20251110
  Transmission Date: 20260118
  Serious: Yes (Other)
  Sender: MYLAN
  Company Number: EU-MYLANLABS-2025M1094378

PATIENT
  Sex: Male

DRUGS (104)
  1. GABAPENTIN [Suspect]
     Active Substance: GABAPENTIN
     Indication: Pain
     Dosage: 600 MILLIGRAM, QD
     Route: 065
     Dates: start: 202410, end: 202410
  2. GABAPENTIN [Suspect]
     Active Substance: GABAPENTIN
     Dosage: 600 MILLIGRAM, QD
     Dates: start: 202410, end: 202410
  3. GABAPENTIN [Suspect]
     Active Substance: GABAPENTIN
     Dosage: 600 MILLIGRAM, QD
     Dates: start: 202410, end: 202410
  4. GABAPENTIN [Suspect]
     Active Substance: GABAPENTIN
     Dosage: 600 MILLIGRAM, QD
     Route: 065
     Dates: start: 202410, end: 202410
  5. GABAPENTIN [Suspect]
     Active Substance: GABAPENTIN
     Dosage: 600 MILLIGRAM, QD
     Route: 065
     Dates: start: 202504
  6. GABAPENTIN [Suspect]
     Active Substance: GABAPENTIN
     Dosage: 600 MILLIGRAM, QD
     Dates: start: 202504
  7. GABAPENTIN [Suspect]
     Active Substance: GABAPENTIN
     Dosage: 600 MILLIGRAM, QD
     Dates: start: 202504
  8. GABAPENTIN [Suspect]
     Active Substance: GABAPENTIN
     Dosage: 600 MILLIGRAM, QD
     Route: 065
     Dates: start: 202504
  9. PREGABALIN [Suspect]
     Active Substance: PREGABALIN
     Indication: Product used for unknown indication
     Dosage: UNK
  10. PREGABALIN [Suspect]
     Active Substance: PREGABALIN
     Dosage: UNK
     Route: 065
  11. PREGABALIN [Suspect]
     Active Substance: PREGABALIN
     Dosage: UNK
     Route: 065
  12. PREGABALIN [Suspect]
     Active Substance: PREGABALIN
     Dosage: UNK
  13. OXYCODONE [Suspect]
     Active Substance: OXYCODONE
     Indication: Product used for unknown indication
     Dosage: 40 MILLIGRAM, QD
  14. OXYCODONE [Suspect]
     Active Substance: OXYCODONE
     Dosage: 40 MILLIGRAM, QD
     Route: 065
  15. OXYCODONE [Suspect]
     Active Substance: OXYCODONE
     Dosage: 40 MILLIGRAM, QD
     Route: 065
  16. OXYCODONE [Suspect]
     Active Substance: OXYCODONE
     Dosage: 40 MILLIGRAM, QD
  17. NALOXONE HYDROCHLORIDE\OXYCODONE HYDROCHLORIDE [Suspect]
     Active Substance: NALOXONE HYDROCHLORIDE\OXYCODONE HYDROCHLORIDE
     Indication: Product used for unknown indication
     Dosage: UNK, QD (80/40 MG PER DAY)
     Dates: end: 202501
  18. NALOXONE HYDROCHLORIDE\OXYCODONE HYDROCHLORIDE [Suspect]
     Active Substance: NALOXONE HYDROCHLORIDE\OXYCODONE HYDROCHLORIDE
     Dosage: UNK, QD (80/40 MG PER DAY)
     Route: 065
     Dates: end: 202501
  19. NALOXONE HYDROCHLORIDE\OXYCODONE HYDROCHLORIDE [Suspect]
     Active Substance: NALOXONE HYDROCHLORIDE\OXYCODONE HYDROCHLORIDE
     Dosage: UNK, QD (80/40 MG PER DAY)
     Route: 065
     Dates: end: 202501
  20. NALOXONE HYDROCHLORIDE\OXYCODONE HYDROCHLORIDE [Suspect]
     Active Substance: NALOXONE HYDROCHLORIDE\OXYCODONE HYDROCHLORIDE
     Dosage: UNK, QD (80/40 MG PER DAY)
     Dates: end: 202501
  21. BUPRENORPHINE [Suspect]
     Active Substance: BUPRENORPHINE
     Indication: Product used for unknown indication
     Dosage: 52 MICROGRAM (PER HOUR)
  22. BUPRENORPHINE [Suspect]
     Active Substance: BUPRENORPHINE
     Dosage: 52 MICROGRAM (PER HOUR)
     Route: 065
  23. BUPRENORPHINE [Suspect]
     Active Substance: BUPRENORPHINE
     Dosage: 52 MICROGRAM (PER HOUR)
     Route: 065
  24. BUPRENORPHINE [Suspect]
     Active Substance: BUPRENORPHINE
     Dosage: 52 MICROGRAM (PER HOUR)
  25. FENTANYL [Suspect]
     Active Substance: FENTANYL
     Indication: Product used for unknown indication
     Dosage: 75 MICROGRAM (PER HOUR)
     Route: 065
  26. FENTANYL [Suspect]
     Active Substance: FENTANYL
     Dosage: 75 MICROGRAM (PER HOUR)
  27. FENTANYL [Suspect]
     Active Substance: FENTANYL
     Dosage: 75 MICROGRAM (PER HOUR)
  28. FENTANYL [Suspect]
     Active Substance: FENTANYL
     Dosage: 75 MICROGRAM (PER HOUR)
     Route: 065
  29. FENTANYL [Suspect]
     Active Substance: FENTANYL
     Dosage: 100 MICROGRAM ( PER HOUR)
     Route: 065
  30. FENTANYL [Suspect]
     Active Substance: FENTANYL
     Dosage: 100 MICROGRAM ( PER HOUR)
  31. FENTANYL [Suspect]
     Active Substance: FENTANYL
     Dosage: 100 MICROGRAM ( PER HOUR)
  32. FENTANYL [Suspect]
     Active Substance: FENTANYL
     Dosage: 100 MICROGRAM ( PER HOUR)
     Route: 065
  33. FENTANYL [Suspect]
     Active Substance: FENTANYL
     Dosage: 100 MICROGRAM (PER HOUR)
     Route: 065
  34. FENTANYL [Suspect]
     Active Substance: FENTANYL
     Dosage: 100 MICROGRAM (PER HOUR)
     Route: 065
  35. FENTANYL [Suspect]
     Active Substance: FENTANYL
     Dosage: 100 MICROGRAM (PER HOUR)
  36. FENTANYL [Suspect]
     Active Substance: FENTANYL
     Dosage: 100 MICROGRAM (PER HOUR)
  37. FENTANYL [Suspect]
     Active Substance: FENTANYL
     Indication: Breakthrough pain
     Dosage: 200 MICROGRAM
  38. FENTANYL [Suspect]
     Active Substance: FENTANYL
     Dosage: 200 MICROGRAM
     Route: 065
  39. FENTANYL [Suspect]
     Active Substance: FENTANYL
     Dosage: 200 MICROGRAM
     Route: 065
  40. FENTANYL [Suspect]
     Active Substance: FENTANYL
     Dosage: 200 MICROGRAM
  41. FENTANYL [Suspect]
     Active Substance: FENTANYL
     Indication: Breakthrough pain
     Dosage: 200 MICROGRAM
  42. FENTANYL [Suspect]
     Active Substance: FENTANYL
     Dosage: 200 MICROGRAM
     Route: 065
  43. FENTANYL [Suspect]
     Active Substance: FENTANYL
     Dosage: 200 MICROGRAM
     Route: 065
  44. FENTANYL [Suspect]
     Active Substance: FENTANYL
     Dosage: 200 MICROGRAM
  45. NIVOLUMAB [Concomitant]
     Active Substance: NIVOLUMAB
     Dosage: UNK
     Route: 065
  46. NIVOLUMAB [Concomitant]
     Active Substance: NIVOLUMAB
     Dosage: UNK
  47. NIVOLUMAB [Concomitant]
     Active Substance: NIVOLUMAB
     Dosage: UNK
  48. NIVOLUMAB [Concomitant]
     Active Substance: NIVOLUMAB
     Dosage: UNK
     Route: 065
  49. NIVOLUMAB [Concomitant]
     Active Substance: NIVOLUMAB
     Dosage: UNK
     Route: 065
  50. NIVOLUMAB [Concomitant]
     Active Substance: NIVOLUMAB
     Dosage: UNK
  51. NIVOLUMAB [Concomitant]
     Active Substance: NIVOLUMAB
     Dosage: UNK
  52. NIVOLUMAB [Concomitant]
     Active Substance: NIVOLUMAB
     Dosage: UNK
     Route: 065
  53. IBUPROFEN [Concomitant]
     Active Substance: IBUPROFEN
     Dosage: UNK
  54. IBUPROFEN [Concomitant]
     Active Substance: IBUPROFEN
     Dosage: UNK
     Route: 065
  55. IBUPROFEN [Concomitant]
     Active Substance: IBUPROFEN
     Dosage: UNK
     Route: 065
  56. IBUPROFEN [Concomitant]
     Active Substance: IBUPROFEN
     Dosage: UNK
  57. NIMESULIDE [Concomitant]
     Active Substance: NIMESULIDE
     Dosage: UNK
  58. NIMESULIDE [Concomitant]
     Active Substance: NIMESULIDE
     Dosage: UNK
     Route: 065
  59. NIMESULIDE [Concomitant]
     Active Substance: NIMESULIDE
     Dosage: UNK
     Route: 065
  60. NIMESULIDE [Concomitant]
     Active Substance: NIMESULIDE
     Dosage: UNK
  61. DICLOFENAC [Concomitant]
     Active Substance: DICLOFENAC
     Dosage: UNK
  62. DICLOFENAC [Concomitant]
     Active Substance: DICLOFENAC
     Dosage: UNK
     Route: 065
  63. DICLOFENAC [Concomitant]
     Active Substance: DICLOFENAC
     Dosage: UNK
     Route: 065
  64. DICLOFENAC [Concomitant]
     Active Substance: DICLOFENAC
     Dosage: UNK
  65. METAMIZOLE [Concomitant]
     Active Substance: METAMIZOLE
     Dosage: UNK
  66. METAMIZOLE [Concomitant]
     Active Substance: METAMIZOLE
     Dosage: UNK
     Route: 065
  67. METAMIZOLE [Concomitant]
     Active Substance: METAMIZOLE
     Dosage: UNK
     Route: 065
  68. METAMIZOLE [Concomitant]
     Active Substance: METAMIZOLE
     Dosage: UNK
  69. TRAMADOL [Concomitant]
     Active Substance: TRAMADOL
     Dosage: UNK
  70. TRAMADOL [Concomitant]
     Active Substance: TRAMADOL
     Dosage: UNK
     Route: 065
  71. TRAMADOL [Concomitant]
     Active Substance: TRAMADOL
     Dosage: UNK
     Route: 065
  72. TRAMADOL [Concomitant]
     Active Substance: TRAMADOL
     Dosage: UNK
  73. TAPENTADOL [Concomitant]
     Active Substance: TAPENTADOL
     Dosage: 200 MILLIGRAM, BID (TWICE A DAY)
     Dates: start: 202412
  74. TAPENTADOL [Concomitant]
     Active Substance: TAPENTADOL
     Dosage: 200 MILLIGRAM, BID (TWICE A DAY)
     Route: 065
     Dates: start: 202412
  75. TAPENTADOL [Concomitant]
     Active Substance: TAPENTADOL
     Dosage: 200 MILLIGRAM, BID (TWICE A DAY)
     Route: 065
     Dates: start: 202412
  76. TAPENTADOL [Concomitant]
     Active Substance: TAPENTADOL
     Dosage: 200 MILLIGRAM, BID (TWICE A DAY)
     Dates: start: 202412
  77. LIDOCAINE [Concomitant]
     Active Substance: LIDOCAINE
     Dosage: UNK
  78. LIDOCAINE [Concomitant]
     Active Substance: LIDOCAINE
     Dosage: UNK
     Route: 065
  79. LIDOCAINE [Concomitant]
     Active Substance: LIDOCAINE
     Dosage: UNK
     Route: 065
  80. LIDOCAINE [Concomitant]
     Active Substance: LIDOCAINE
     Dosage: UNK
  81. TRAZODONE [Concomitant]
     Active Substance: TRAZODONE HYDROCHLORIDE
     Indication: Insomnia
     Dosage: 150 MILLIGRAM
  82. TRAZODONE [Concomitant]
     Active Substance: TRAZODONE HYDROCHLORIDE
     Dosage: 150 MILLIGRAM
     Route: 065
  83. TRAZODONE [Concomitant]
     Active Substance: TRAZODONE HYDROCHLORIDE
     Dosage: 150 MILLIGRAM
     Route: 065
  84. TRAZODONE [Concomitant]
     Active Substance: TRAZODONE HYDROCHLORIDE
     Dosage: 150 MILLIGRAM
  85. ESCITALOPRAM [Concomitant]
     Active Substance: ESCITALOPRAM OXALATE
     Indication: Depression
     Dosage: 20 MILLIGRAM, QD (PER DAY)
  86. ESCITALOPRAM [Concomitant]
     Active Substance: ESCITALOPRAM OXALATE
     Dosage: 20 MILLIGRAM, QD (PER DAY)
     Route: 065
  87. ESCITALOPRAM [Concomitant]
     Active Substance: ESCITALOPRAM OXALATE
     Dosage: 20 MILLIGRAM, QD (PER DAY)
     Route: 065
  88. ESCITALOPRAM [Concomitant]
     Active Substance: ESCITALOPRAM OXALATE
     Dosage: 20 MILLIGRAM, QD (PER DAY)
  89. NALOXEGOL [Concomitant]
     Active Substance: NALOXEGOL
     Indication: Constipation
     Dosage: 25 MILLIGRAM, QD (PER DAY)
     Dates: start: 202503
  90. NALOXEGOL [Concomitant]
     Active Substance: NALOXEGOL
     Dosage: 25 MILLIGRAM, QD (PER DAY)
     Route: 065
     Dates: start: 202503
  91. NALOXEGOL [Concomitant]
     Active Substance: NALOXEGOL
     Dosage: 25 MILLIGRAM, QD (PER DAY)
     Route: 065
     Dates: start: 202503
  92. NALOXEGOL [Concomitant]
     Active Substance: NALOXEGOL
     Dosage: 25 MILLIGRAM, QD (PER DAY)
     Dates: start: 202503
  93. ROSUVASTATIN CALCIUM [Concomitant]
     Active Substance: ROSUVASTATIN CALCIUM
     Dosage: 20 MILLIGRAM, QD
  94. ROSUVASTATIN CALCIUM [Concomitant]
     Active Substance: ROSUVASTATIN CALCIUM
     Dosage: 20 MILLIGRAM, QD
     Route: 065
  95. ROSUVASTATIN CALCIUM [Concomitant]
     Active Substance: ROSUVASTATIN CALCIUM
     Dosage: 20 MILLIGRAM, QD
     Route: 065
  96. ROSUVASTATIN CALCIUM [Concomitant]
     Active Substance: ROSUVASTATIN CALCIUM
     Dosage: 20 MILLIGRAM, QD
  97. OMEPRAZOLE [Concomitant]
     Active Substance: OMEPRAZOLE
     Dosage: 20 MILLIGRAM, QD
  98. OMEPRAZOLE [Concomitant]
     Active Substance: OMEPRAZOLE
     Dosage: 20 MILLIGRAM, QD
     Route: 065
  99. OMEPRAZOLE [Concomitant]
     Active Substance: OMEPRAZOLE
     Dosage: 20 MILLIGRAM, QD
     Route: 065
  100. OMEPRAZOLE [Concomitant]
     Active Substance: OMEPRAZOLE
     Dosage: 20 MILLIGRAM, QD
  101. Zolpinox [Concomitant]
     Dosage: 5 MILLIGRAM, QD
  102. Zolpinox [Concomitant]
     Dosage: 5 MILLIGRAM, QD
     Route: 065
  103. Zolpinox [Concomitant]
     Dosage: 5 MILLIGRAM, QD
     Route: 065
  104. Zolpinox [Concomitant]
     Dosage: 5 MILLIGRAM, QD

REACTIONS (7)
  - Hallucination [Unknown]
  - Vertigo [Unknown]
  - Nausea [Unknown]
  - Somnolence [Unknown]
  - Constipation [Unknown]
  - Skin reaction [Unknown]
  - Drug ineffective [Unknown]

NARRATIVE: CASE EVENT DATE: 20250101
